FAERS Safety Report 8930386 (Version 2)
Quarter: 2012Q4

REPORT INFORMATION
  Report Type: 
  Country: JP (occurrence: JP)
  Receive Date: 20121128
  Receipt Date: 20121213
  Transmission Date: 20130627
  Serious: Yes (Death, Disabling)
  Sender: FDA-Public Use
  Company Number: JP-GLAXOSMITHKLINE-B0846844A

PATIENT
  Age: 79 Year
  Sex: Female

DRUGS (4)
  1. ARIXTRA [Suspect]
     Indication: THROMBOSIS PROPHYLAXIS
     Dosage: 1.5MG Per day
     Route: 058
     Dates: start: 20121024, end: 20121028
  2. PLAVIX [Suspect]
     Indication: PRODUCT USED FOR UNKNOWN INDICATION
     Dosage: 75MG Per day
     Route: 048
     Dates: end: 20121017
  3. PLAVIX [Suspect]
     Indication: PRODUCT USED FOR UNKNOWN INDICATION
     Dosage: 75MG Per day
     Route: 048
     Dates: start: 20121024, end: 20121027
  4. NON-STEROIDAL ANTI-INFLAMMATORY DRUG [Concomitant]
     Route: 065

REACTIONS (3)
  - Cerebral haemorrhage [Recovered/Resolved with Sequelae]
  - Paralysis [Not Recovered/Not Resolved]
  - Cardio-respiratory arrest [Fatal]
